FAERS Safety Report 26189477 (Version 1)
Quarter: 2025Q4

REPORT INFORMATION
  Report Type: Spontaneous
  Country: EU (occurrence: EU)
  Receive Date: 20251223
  Receipt Date: 20251223
  Transmission Date: 20260117
  Serious: Yes (Hospitalization, Other)
  Sender: CELLTRION
  Company Number: EU-ABBVIE-6572742

PATIENT

DRUGS (13)
  1. ADALIMUMAB [Suspect]
     Active Substance: ADALIMUMAB
     Indication: Colitis ulcerative
     Dosage: EVERY 7 DAYS
     Route: 058
     Dates: start: 20230719
  2. ADALIMUMAB [Suspect]
     Active Substance: ADALIMUMAB
  3. INFLIXIMAB [Suspect]
     Active Substance: INFLIXIMAB
     Indication: Rheumatoid arthritis
     Dosage: 5 MG
     Dates: start: 20191213
  4. INFLIXIMAB [Suspect]
     Active Substance: INFLIXIMAB
     Dosage: 4.24 UG/ML, ANTI 0.0 UG/ML, EVERY 6 WEEKS
     Dates: start: 202006
  5. INFLIXIMAB [Suspect]
     Active Substance: INFLIXIMAB
     Dosage: EVERY 4 WEEKS
     Dates: start: 202106, end: 2021
  6. INFLIXIMAB [Suspect]
     Active Substance: INFLIXIMAB
     Dosage: 0.0 UG/ML, ANTI 1131.70 UG/ML
     Dates: start: 20211213
  7. INFLIXIMAB [Suspect]
     Active Substance: INFLIXIMAB
     Dosage: 8.26 UG/ML, ANTI 0 UG/ML
  8. USTEKINUMAB [Suspect]
     Active Substance: USTEKINUMAB
     Indication: Arthralgia
     Dosage: EVERY 8 WEEKS
     Dates: start: 20231024, end: 20250718
  9. ADALIMUMAB [Suspect]
     Active Substance: ADALIMUMAB
     Indication: Colitis ulcerative
     Dosage: UNK
     Route: 058
     Dates: start: 20210114
  10. PREDNISONE [Concomitant]
     Active Substance: PREDNISONE
     Indication: Rheumatoid arthritis
     Dosage: 20 MILLIGRAM, EVERY 1 DAY
     Dates: start: 20210311
  11. PREDNISONE [Concomitant]
     Active Substance: PREDNISONE
     Indication: Colitis ulcerative
     Dosage: 40 MILLIGRAM, EVERY 1 DAY
     Dates: start: 20230803
  12. PREDNISONE [Concomitant]
     Active Substance: PREDNISONE
     Dosage: 20 MILLIGRAM, EVERY 1 DAY
     Dates: start: 20250523, end: 20251104
  13. PREDNISONE [Concomitant]
     Active Substance: PREDNISONE
     Dosage: 40 MILLIGRAM, EVERY 1 DAY

REACTIONS (5)
  - Rheumatoid arthritis [Not Recovered/Not Resolved]
  - Lyme disease [Unknown]
  - Weight decreased [Unknown]
  - Infusion related reaction [Unknown]
  - Intentional product use issue [Unknown]

NARRATIVE: CASE EVENT DATE: 20210101
